FAERS Safety Report 24860116 (Version 1)
Quarter: 2025Q1

REPORT INFORMATION
  Report Type: Spontaneous
  Country: US (occurrence: US)
  Receive Date: 20250120
  Receipt Date: 20250120
  Transmission Date: 20250408
  Serious: Yes (Other)
  Sender: JOHNSON AND JOHNSON
  Company Number: US-KENVUE-20250102602

PATIENT
  Sex: Female

DRUGS (1)
  1. TYLENOL [Suspect]
     Active Substance: ACETAMINOPHEN
     Indication: Migraine
     Dosage: 2 DOSAGE FORM, THRICE A DAY
     Route: 065
     Dates: end: 1980

REACTIONS (2)
  - Drug dependence [Recovered/Resolved]
  - Exposure during pregnancy [Unknown]
